FAERS Safety Report 6336465-8 (Version None)
Quarter: 2009Q3

REPORT INFORMATION
  Report Type: 
  Country: None (occurrence: None)
  Receive Date: 20090901
  Receipt Date: 20090825
  Transmission Date: 20100115
  Serious: Yes (Hospitalization)
  Sender: FDA-Public Use
  Company Number: A0804061A

PATIENT
  Age: 79 Year
  Sex: Male

DRUGS (7)
  1. AVODART [Suspect]
     Dosage: 1CAP PER DAY
     Route: 048
     Dates: start: 20090811
  2. CARDURA [Concomitant]
  3. TOPROL-XL [Concomitant]
  4. LIPITOR [Concomitant]
  5. ASPIRIN [Concomitant]
  6. COSOPT [Concomitant]
  7. LUMIGAN [Concomitant]

REACTIONS (2)
  - AGGRESSION [None]
  - DISORIENTATION [None]
